FAERS Safety Report 7358331-1 (Version None)
Quarter: 2011Q1

REPORT INFORMATION
  Report Type: 
  Country: None (occurrence: None)
  Receive Date: 20110317
  Receipt Date: 20110305
  Transmission Date: 20110831
  Serious: Yes (Hospitalization)
  Sender: FDA-Public Use
  Company Number: PHHY2011ZA18599

PATIENT
  Sex: Female

DRUGS (4)
  1. ACLASTA [Suspect]
     Dosage: 5 MG/100 ML
  2. CALTRATE [Concomitant]
  3. ELTROXIN [Concomitant]
  4. BLADDER PILL [Concomitant]

REACTIONS (2)
  - FALL [None]
  - FRACTURED SACRUM [None]
